FAERS Safety Report 21761397 (Version 2)
Quarter: 2023Q1

REPORT INFORMATION
  Report Type: Report from Study
  Country: US (occurrence: US)
  Receive Date: 20221221
  Receipt Date: 20230103
  Transmission Date: 20230417
  Serious: Yes (Hospitalization)
  Sender: FDA-Public Use
  Company Number: US-OTSUKA-2022_055057

PATIENT
  Age: 83 Year
  Sex: Male
  Weight: 81.65 kg

DRUGS (5)
  1. TOLVAPTAN [Suspect]
     Active Substance: TOLVAPTAN
     Indication: Blood sodium decreased
     Dosage: UNK
     Route: 065
     Dates: start: 202209
  2. SALT [Suspect]
     Active Substance: SODIUM CHLORIDE
     Indication: Blood sodium decreased
     Dosage: UNK
     Route: 065
  3. UREA [Suspect]
     Active Substance: UREA
     Indication: Blood sodium decreased
     Dosage: 15 G
     Route: 065
  4. SODIUM CHLORIDE [Suspect]
     Active Substance: SODIUM CHLORIDE
     Indication: Product used for unknown indication
     Dosage: UNK
     Route: 065
  5. LASIX [Concomitant]
     Active Substance: FUROSEMIDE
     Indication: Product used for unknown indication
     Dosage: UNK
     Route: 065

REACTIONS (8)
  - Blood sodium decreased [Unknown]
  - Fall [Unknown]
  - Housebound [Unknown]
  - Abdominal discomfort [Unknown]
  - Swelling [Unknown]
  - Retching [Unknown]
  - Vomiting [Unknown]
  - Inability to afford medication [Unknown]

NARRATIVE: CASE EVENT DATE: 20221219
